FAERS Safety Report 17951553 (Version 2)
Quarter: 2020Q3

REPORT INFORMATION
  Report Type: Spontaneous
  Country: US (occurrence: US)
  Receive Date: 20200626
  Receipt Date: 20200822
  Transmission Date: 20201103
  Serious: Yes (Other)
  Sender: FDA-Public Use
  Company Number: US-ACTELION-A-US2020-203177

PATIENT
  Age: 87 Year
  Sex: Female
  Weight: 58.96 kg

DRUGS (3)
  1. OPSUMIT [Suspect]
     Active Substance: MACITENTAN
     Indication: PULMONARY ARTERIAL HYPERTENSION
     Dosage: 10 MG, QD
     Route: 048
  2. XARELTO [Concomitant]
     Active Substance: RIVAROXABAN
  3. AMLODIPINE BESILATE [Concomitant]
     Active Substance: AMLODIPINE BESYLATE
     Dosage: 5 MG
     Dates: end: 202002

REACTIONS (5)
  - Gait disturbance [Unknown]
  - Urinary tract infection [Unknown]
  - Back pain [Unknown]
  - Oedema peripheral [Unknown]
  - Dyspnoea [Unknown]

NARRATIVE: CASE EVENT DATE: 202003
